FAERS Safety Report 8214706-X (Version None)
Quarter: 2012Q1

REPORT INFORMATION
  Report Type: 
  Country: None (occurrence: None)
  Receive Date: 20120316
  Receipt Date: 20120309
  Transmission Date: 20120608
  Serious: Yes (Hospitalization)
  Sender: FDA-Public Use
  Company Number: JP-VERTEX PHARMACEUTICALS INC.-AE-2012-003624

PATIENT
  Age: 63 Year
  Sex: Female

DRUGS (1)
  1. TELAVIC (TELAPREVIR) [Suspect]
     Indication: HEPATITIS C
     Route: 048
     Dates: start: 20120209, end: 20120308

REACTIONS (4)
  - VOMITING [None]
  - DECREASED APPETITE [None]
  - ANAEMIA [None]
  - NAUSEA [None]
